FAERS Safety Report 25636846 (Version 1)
Quarter: 2025Q3

REPORT INFORMATION
  Report Type: Spontaneous
  Country: US (occurrence: US)
  Receive Date: 20250804
  Receipt Date: 20250804
  Transmission Date: 20251020
  Serious: No
  Sender: ROCHE
  Company Number: US-ROCHE-10000349155

PATIENT
  Sex: Female

DRUGS (14)
  1. ACTEMRA ACTPEN [Suspect]
     Active Substance: TOCILIZUMAB
     Indication: Arthralgia
     Dosage: STRENGTH: 162MG/ 0.9 ML
     Route: 058
  2. MORPHINE SUL TAB 15MG [Concomitant]
  3. OXYCODONE HC TAB 10 MG [Concomitant]
  4. AMLODIPINE B POW [Concomitant]
  5. CALCIUM TAB 500MG [Concomitant]
  6. FOLIC ACID POW [Concomitant]
  7. LAMOTRIGINE POW [Concomitant]
  8. METOPROLOL S TB2 100 MG [Concomitant]
  9. OMEPRAZOLE POW [Concomitant]
  10. VITAMIN D TAB 50 MCG [Concomitant]
  11. ALPRAZOLAM TAB 0.5 MG [Concomitant]
  12. ATROVASTATIN TAB 80 MG [Concomitant]
  13. FLUTICASONE SPR 50 MCG [Concomitant]
  14. METHYLPRED TAB 4 MG [Concomitant]

REACTIONS (1)
  - Rash pruritic [Not Recovered/Not Resolved]
